FAERS Safety Report 15355325 (Version 1)
Quarter: 2018Q3

REPORT INFORMATION
  Report Type: Spontaneous
  Country: US (occurrence: US)
  Receive Date: 20180830
  Receipt Date: 20180830
  Transmission Date: 20181010
  Serious: Yes (Life-Threatening, Other)
  Sender: FDA-Public Use
  Company Number: None

PATIENT
  Age: 55 Year
  Sex: Male
  Weight: 78.3 kg

DRUGS (4)
  1. FLO VENT [Concomitant]
  2. MAVYRET [Suspect]
     Active Substance: GLECAPREVIR\PIBRENTASVIR
     Indication: HEPATITIS C
     Dosage: ?          QUANTITY:3 TABLET(S);?
     Route: 048
  3. GAVANPINTAN [Concomitant]
  4. XAFAXIN 550 [Concomitant]

REACTIONS (4)
  - Blood bilirubin increased [None]
  - Contusion [None]
  - Vomiting [None]
  - Platelet count decreased [None]

NARRATIVE: CASE EVENT DATE: 20180606
